FAERS Safety Report 9472692 (Version 1)
Quarter: 2013Q3

REPORT INFORMATION
  Report Type: Spontaneous
  Country: CH (occurrence: CH)
  Receive Date: 20130823
  Receipt Date: 20130823
  Transmission Date: 20140515
  Serious: Yes (Other)
  Sender: FDA-Public Use
  Company Number: CH-TEVA-426268ISR

PATIENT
  Age: 8 Month
  Sex: Male
  Weight: 1.8 kg

DRUGS (8)
  1. ATENOLOL [Suspect]
     Indication: SECONDARY HYPERTENSION
     Dosage: 50 MILLIGRAM DAILY; START AND STOP DATES UNKNOWN
     Route: 064
  2. ARANESP 30 MCG FERTIGSPRITZEN [Suspect]
     Indication: RENAL FAILURE CHRONIC
     Route: 064
  3. LOPRIL [Suspect]
     Indication: SECONDARY HYPERTENSION
     Dosage: 10 MILLIGRAM DAILY;
     Route: 064
     Dates: end: 20120916
  4. METO ZEROK [Suspect]
     Indication: SECONDARY HYPERTENSION
     Dosage: DOSE REGIMEN AND START/ STOP DATE NOT REPORTED
     Route: 064
  5. ADALAT CR 30 MG RETARDTABLETTEN [Suspect]
     Indication: PRE-ECLAMPSIA
     Dosage: 90 MILLIGRAM DAILY; START AND STOP DATE NOT KNOWN
     Route: 064
  6. ASPIRIN CARDIO 100 FILMTABLETTEN [Suspect]
     Indication: PRE-ECLAMPSIA
     Dosage: 100 MILLIGRAM DAILY; START AND STOP DATE NOT KNOWN
     Route: 064
  7. CALCITROL [Concomitant]
     Dosage: DOSE, START AND STOP DATE UNKNOWN
     Route: 064
  8. ELEVIT PRONATAL [Concomitant]
     Route: 064

REACTIONS (6)
  - Premature baby [Recovered/Resolved]
  - Foetal growth restriction [Recovered/Resolved]
  - Neonatal respiratory distress syndrome [Recovered/Resolved]
  - Hypotension [Recovered/Resolved]
  - Atrial septal defect [Unknown]
  - Exposure during pregnancy [Recovered/Resolved]
